FAERS Safety Report 8454106 (Version 2)
Quarter: 2012Q4

REPORT INFORMATION
  Report Type: Report from Study
  Country: FR (occurrence: FR)
  Receive Date: 20120312
  Receipt Date: 20121002
  Transmission Date: 20130627
  Serious: Yes (Hospitalization)
  Sender: FDA-Public Use
  Company Number: PHHY2012FR020613

PATIENT
  Age: 65 None
  Sex: Male
  Weight: 79 kg

DRUGS (1)
  1. STI571 [Suspect]
     Indication: CHRONIC MYELOID LEUKAEMIA
     Dosage: 400 mg, UNK
     Route: 048
     Dates: start: 20070830

REACTIONS (4)
  - Tongue neoplasm [Recovering/Resolving]
  - Second primary malignancy [Recovering/Resolving]
  - Graft versus host disease [Recovering/Resolving]
  - Rash papular [Recovering/Resolving]
